FAERS Safety Report 6195929-0 (Version None)
Quarter: 2009Q2

REPORT INFORMATION
  Report Type: 
  Country: None (occurrence: None)
  Receive Date: 20090515
  Receipt Date: 20090511
  Transmission Date: 20091009
  Serious: Yes (Death)
  Sender: FDA-Public Use
  Company Number: CHPA2009US11384

PATIENT
  Age: 82 Year
  Sex: Female

DRUGS (1)
  1. BENEFIBER PLUS CALCIUM WITH WHEAT DEXTRIN(NCH)(CALCIUM CARBONATE, WHEA [Suspect]
     Dosage: ORAL
     Route: 048

REACTIONS (2)
  - CONCOMITANT DISEASE AGGRAVATED [None]
  - GASTRIC NEOPLASM [None]
